FAERS Safety Report 12634859 (Version 1)
Quarter: 2016Q3

REPORT INFORMATION
  Report Type: Spontaneous
  Country: AU (occurrence: AU)
  Receive Date: 20160808
  Receipt Date: 20160808
  Transmission Date: 20161109
  Serious: Yes (Hospitalization, Disabling, Other)
  Sender: FDA-Public Use
  Company Number: AU-SHIRE-AU201608186

PATIENT
  Age: 17 Year
  Sex: Male
  Weight: 80 kg

DRUGS (3)
  1. SERETIDE [Concomitant]
     Active Substance: FLUTICASONE PROPIONATE\SALMETEROL XINAFOATE
     Indication: PRODUCT USED FOR UNKNOWN INDICATION
     Dosage: 2 DF, 2X/DAY:BID (250/25) 2 PUFFS BID
     Route: 048
  2. MEZAVANT [Suspect]
     Active Substance: MESALAMINE
     Indication: COLITIS ULCERATIVE
     Dosage: 2.4 G, 2X/DAY:BID (II/ 1.2 G-BID)
     Route: 048
     Dates: start: 20150505
  3. VALPROATE [Concomitant]
     Active Substance: VALPROIC ACID
     Indication: EPILEPSY
     Dosage: 700 MG, 2X/DAY:BID
     Route: 048
     Dates: start: 20151013

REACTIONS (8)
  - Pericarditis [Recovering/Resolving]
  - C-reactive protein increased [Recovering/Resolving]
  - Anaemia [Recovering/Resolving]
  - Inappropriate schedule of drug administration [Not Recovered/Not Resolved]
  - Pyrexia [Recovering/Resolving]
  - Drug administered to patient of inappropriate age [Recovered/Resolved]
  - Pericardial effusion [Recovering/Resolving]
  - Hypoalbuminaemia [Recovering/Resolving]

NARRATIVE: CASE EVENT DATE: 20150505
